FAERS Safety Report 9921402 (Version 1)
Quarter: 2014Q1

REPORT INFORMATION
  Report Type: Spontaneous
  Country: US (occurrence: US)
  Receive Date: 20140225
  Receipt Date: 20140225
  Transmission Date: 20141002
  Serious: No
  Sender: FDA-Public Use
  Company Number: US-JNJFOC-20140202344

PATIENT
  Age: 53 Year
  Sex: Male

DRUGS (8)
  1. INVEGA SUSTENNA [Suspect]
     Indication: SCHIZOPHRENIA
     Route: 030
     Dates: start: 20140131
  2. COGENTIN [Concomitant]
     Route: 065
  3. WELLBUTRIN [Concomitant]
     Route: 065
  4. KLONOPIN [Concomitant]
     Route: 065
  5. HALDOL [Concomitant]
     Route: 030
  6. ATIVAN [Concomitant]
     Route: 065
  7. RISPERIDONE [Concomitant]
     Route: 048
  8. ALTACE [Concomitant]
     Route: 065

REACTIONS (1)
  - Incorrect dose administered [Unknown]
